FAERS Safety Report 6629638-8 (Version None)
Quarter: 2010Q1

REPORT INFORMATION
  Report Type: 
  Country: None (occurrence: None)
  Receive Date: 20100310
  Receipt Date: 20100310
  Transmission Date: 20100710
  Serious: Yes (Hospitalization)
  Sender: FDA-Public Use
  Company Number: None

PATIENT
  Sex: Male
  Weight: 114.3065 kg

DRUGS (1)
  1. VALTREX [Suspect]
     Indication: HERPES ZOSTER
     Dosage: 1 GM TAB 3 TIMES DAILY RX 7080191 1 TAB MORNING 1 TAB LUNCH
     Dates: start: 20100219

REACTIONS (6)
  - AGGRESSION [None]
  - CONFUSIONAL STATE [None]
  - HALLUCINATION [None]
  - SPEECH DISORDER [None]
  - TREMOR [None]
  - VOMITING [None]
